FAERS Safety Report 14137479 (Version 2)
Quarter: 2017Q4

REPORT INFORMATION
  Report Type: Spontaneous
  Country: CH (occurrence: CH)
  Receive Date: 20171027
  Receipt Date: 20171030
  Transmission Date: 20180321
  Serious: Yes (Hospitalization)
  Sender: FDA-Public Use
  Company Number: CH-PFIZER INC-2017462078

PATIENT
  Age: 84 Year
  Sex: Male

DRUGS (24)
  1. CLOPIN ECO [Suspect]
     Active Substance: CLOZAPINE
     Dosage: 6.25 MG, 2X/DAY
     Route: 048
     Dates: start: 20170918, end: 20170925
  2. DISTRANEURIN [Concomitant]
     Active Substance: CLOMETHIAZOLE
     Dosage: 1 DF, 3X/DAY (1 TAB, 3X/DAY)
     Dates: start: 20171008
  3. XANAX [Suspect]
     Active Substance: ALPRAZOLAM
     Dosage: UNK
     Route: 048
     Dates: start: 2014
  4. MADOPAR LIQ 62.5 [Suspect]
     Active Substance: BENSERAZIDE HYDROCHLORIDE\LEVODOPA
     Dosage: 437.5 MG/D (250 + 187.5)
     Route: 048
     Dates: start: 20170913
  5. MADOPAR LIQ 62.5 [Suspect]
     Active Substance: BENSERAZIDE HYDROCHLORIDE\LEVODOPA
     Dosage: 750 MG/D
     Route: 048
     Dates: start: 20170918
  6. SEROQUEL [Concomitant]
     Active Substance: QUETIAPINE FUMARATE
     Dosage: 50 MG, 2X/DAY + 25 MG IN RESERVE
     Dates: end: 20170918
  7. CRESTOR [Concomitant]
     Active Substance: ROSUVASTATIN CALCIUM
     Dosage: 5 MG, DAILY
  8. DISTRANEURIN [Concomitant]
     Active Substance: CLOMETHIAZOLE
     Dosage: 192 MG, 1X/DAY
     Route: 048
  9. MADOPAR LIQ 62.5 [Suspect]
     Active Substance: BENSERAZIDE HYDROCHLORIDE\LEVODOPA
     Dosage: UNK UNK, DAILY MORNING
     Route: 048
     Dates: start: 2014
  10. DAFALGAN [Concomitant]
     Active Substance: ACETAMINOPHEN
     Dosage: UNK, AS NEEDED
  11. XANAX [Suspect]
     Active Substance: ALPRAZOLAM
     Dosage: 0.25 MG, 2X/DAY
     Route: 048
     Dates: start: 1976
  12. MADOPAR [Suspect]
     Active Substance: BENSERAZIDE HYDROCHLORIDE\LEVODOPA
     Dosage: 250 MG THREE TIMES DAILY AND ONE TIME DAILY AS NEEDED
     Dates: start: 2014
  13. CLOPIN ECO [Suspect]
     Active Substance: CLOZAPINE
     Dosage: 12.5 + 6.25 MG /DAILY
     Route: 048
     Dates: start: 20170926, end: 20171007
  14. SERTRALINE [Concomitant]
     Active Substance: SERTRALINE HYDROCHLORIDE
     Dosage: 200 MG, 1X/DAY
  15. GLAUPAX [Concomitant]
     Active Substance: ACETAZOLAMIDE
     Dosage: 250 MG, DAILY
  16. SEROQUEL [Concomitant]
     Active Substance: QUETIAPINE FUMARATE
     Dosage: 25 MG, 3X/DAY
     Dates: start: 20170829
  17. ASPIRIN CARDIO [Concomitant]
     Active Substance: ASPIRIN
     Dosage: 100 MG, 1X/DAY
  18. BECOZYME C FORTE [Concomitant]
     Dosage: 1 DF, DAILY
  19. MOVICOL [Concomitant]
     Active Substance: POLYETHYLENE GLYCOL 3350\POTASSIUM CHLORIDE\SODIUM BICARBONATE\SODIUM CHLORIDE
     Dosage: 2 DF, 1X/DAY
  20. LYRICA [Suspect]
     Active Substance: PREGABALIN
     Dosage: 25 MG, 1X/DAY
     Route: 048
     Dates: start: 20170925
  21. XANAX [Suspect]
     Active Substance: ALPRAZOLAM
     Dosage: UNK
     Route: 048
     Dates: start: 20170901, end: 20170928
  22. SEROQUEL [Concomitant]
     Active Substance: QUETIAPINE FUMARATE
     Dosage: 25 MG, UNK
     Dates: start: 201708, end: 20170828
  23. SEROQUEL [Concomitant]
     Active Substance: QUETIAPINE FUMARATE
     Dosage: 6.25 MG, 3X/DAY
     Dates: start: 20171008
  24. DISTRANEURIN [Concomitant]
     Active Substance: CLOMETHIAZOLE
     Dosage: 1 DF, 3X/DAY (1 TAB, 3X/DAY)
     Dates: end: 20170918

REACTIONS (8)
  - Cognitive disorder [Unknown]
  - Illusion [Not Recovered/Not Resolved]
  - Vertigo [Not Recovered/Not Resolved]
  - Fall [Not Recovered/Not Resolved]
  - Balance disorder [Not Recovered/Not Resolved]
  - Loss of consciousness [Recovered/Resolved]
  - Overdose [Unknown]
  - Agitation [Not Recovered/Not Resolved]

NARRATIVE: CASE EVENT DATE: 201708
